FAERS Safety Report 7178272-2 (Version None)
Quarter: 2010Q4

REPORT INFORMATION
  Report Type: 
  Country: None (occurrence: None)
  Receive Date: 20101220
  Receipt Date: 20101217
  Transmission Date: 20110411
  Serious: Yes (Other)
  Sender: FDA-Public Use
  Company Number: GB-PFIZER INC-2010172216

PATIENT
  Age: 68 Year
  Sex: Female

DRUGS (8)
  1. AMLODIPINE BESYLATE [Suspect]
     Indication: HYPERTENSION
  2. RAMIPRIL [Suspect]
     Indication: HYPERTENSION
  3. METFORMIN HYDROCHLORIDE [Concomitant]
  4. GABAPENTIN [Concomitant]
  5. FUROSEMIDE [Concomitant]
     Indication: HYPERTENSION
  6. SOTALOL [Concomitant]
     Indication: HYPERTENSION
  7. GLICLAZIDE [Concomitant]
  8. PRAVASTATIN [Concomitant]

REACTIONS (2)
  - DYSKINESIA [None]
  - TRANSIENT ISCHAEMIC ATTACK [None]
